FAERS Safety Report 7544224-3 (Version None)
Quarter: 2011Q2

REPORT INFORMATION
  Report Type: 
  Country: None (occurrence: None)
  Receive Date: 20110613
  Receipt Date: 20061204
  Transmission Date: 20111010
  Serious: Yes (Hospitalization, Other)
  Sender: FDA-Public Use
  Company Number: PHMT2005CA00868

PATIENT
  Sex: Female

DRUGS (4)
  1. CORTISONE ACETATE [Concomitant]
  2. LEVOTHYROXINE SODIUM [Concomitant]
  3. DRUG THERAPY NOS [Concomitant]
  4. SANDOSTATIN [Suspect]
     Indication: ACROMEGALY
     Dosage: 20 MG, EVERY 4 WEEKS
     Dates: start: 20041103

REACTIONS (11)
  - ASTHENIA [None]
  - MONOPLEGIA [None]
  - CEREBROVASCULAR ACCIDENT [None]
  - FATIGUE [None]
  - DISORIENTATION [None]
  - GASTROENTERITIS VIRAL [None]
  - WEIGHT DECREASED [None]
  - BLOOD PRESSURE ABNORMAL [None]
  - INSULIN-LIKE GROWTH FACTOR DECREASED [None]
  - HEADACHE [None]
  - HYPERSENSITIVITY [None]
